FAERS Safety Report 14541905 (Version 1)
Quarter: 2018Q1

REPORT INFORMATION
  Report Type: Spontaneous
  Country: US (occurrence: US)
  Receive Date: 20180216
  Receipt Date: 20180216
  Transmission Date: 20180509
  Serious: No
  Sender: FDA-Public Use
  Company Number: US-BAUSCH-BL-2017-019603

PATIENT
  Age: 48 Year
  Sex: Female
  Weight: 56.75 kg

DRUGS (1)
  1. NEOMYCIN AND POLYMYXIN B SULFATES AND HYDROCORTISONE [Suspect]
     Active Substance: HYDROCORTISONE\NEOMYCIN SULFATE\POLYMYXIN B SULFATE
     Indication: DRY EYE
     Route: 047
     Dates: start: 20170618, end: 20170618

REACTIONS (6)
  - Eye pain [Recovering/Resolving]
  - Incorrect route of drug administration [Unknown]
  - Accidental exposure to product [Unknown]
  - Off label use [Unknown]
  - Vision blurred [Recovering/Resolving]
  - Eye irritation [Recovering/Resolving]

NARRATIVE: CASE EVENT DATE: 20170618
